FAERS Safety Report 25956861 (Version 1)
Quarter: 2025Q4

REPORT INFORMATION
  Report Type: Spontaneous
  Country: US (occurrence: None)
  Receive Date: 20251023
  Receipt Date: 20251023
  Transmission Date: 20260118
  Serious: Yes (Other)
  Sender: FDA-CTU
  Company Number: None

PATIENT
  Age: 90 Year
  Sex: Male
  Weight: 107.64 kg

DRUGS (8)
  1. XTANDI [Suspect]
     Active Substance: ENZALUTAMIDE
     Indication: Prostate cancer
     Dosage: 120 MG DAILY ORAL
     Route: 048
  2. METOPROLOL TARTRATE [Concomitant]
     Active Substance: METOPROLOL TARTRATE
  3. CLOPIDOGREL [Concomitant]
     Active Substance: CLOPIDOGREL BISULFATE
  4. ATORVASTATIN [Concomitant]
     Active Substance: ATORVASTATIN
  5. TAMSULOSIN [Concomitant]
     Active Substance: TAMSULOSIN
  6. ASPIRIN [Concomitant]
     Active Substance: ASPIRIN
  7. Tresiba 100 unit/mL [Concomitant]
  8. Janumet Xr 50-1000 mg [Concomitant]

REACTIONS (1)
  - Hot flush [None]

NARRATIVE: CASE EVENT DATE: 20251023
